FAERS Safety Report 9416678 (Version 1)
Quarter: 2013Q3

REPORT INFORMATION
  Report Type: Spontaneous
  Country: US (occurrence: US)
  Receive Date: 20130724
  Receipt Date: 20130724
  Transmission Date: 20140515
  Serious: Yes (Other)
  Sender: FDA-Public Use
  Company Number: US-ASTELLAS-2013US007708

PATIENT
  Age: 22 Year
  Sex: Female

DRUGS (3)
  1. PROGRAF [Suspect]
     Indication: LIVER TRANSPLANT
     Dosage: UNK
     Route: 065
  2. CORTICOSTEROID NOS [Concomitant]
     Indication: LIVER TRANSPLANT
     Dosage: UNK
     Route: 065
  3. ACETAMINOPHEN [Concomitant]
     Indication: TOOTHACHE
     Dosage: 6000 MG, UID/QD
     Route: 048

REACTIONS (5)
  - Hepatic haemorrhage [Unknown]
  - Graft versus host disease [Recovered/Resolved]
  - Haemolytic anaemia [Recovered/Resolved]
  - Thrombocytopenia [Unknown]
  - Exposure during pregnancy [Unknown]
